FAERS Safety Report 5288370-6 (Version None)
Quarter: 2007Q2

REPORT INFORMATION
  Report Type: 
  Country: None (occurrence: None)
  Receive Date: 20070405
  Receipt Date: 20070326
  Transmission Date: 20071010
  Serious: Yes (Other)
  Sender: FDA-Public Use
  Company Number: DE-ABBOTT-07P-062-0360003-00

PATIENT
  Sex: Male
  Weight: 80 kg

DRUGS (2)
  1. HUMIRA [Suspect]
     Indication: PSORIATIC ARTHROPATHY
     Route: 058
     Dates: start: 20051001, end: 20061001
  2. HUMIRA [Suspect]
     Route: 058
     Dates: start: 20070201

REACTIONS (2)
  - EPILEPSY [None]
  - PERONEAL NERVE PALSY [None]
